FAERS Safety Report 8875103 (Version 1)
Quarter: 2012Q4

REPORT INFORMATION
  Report Type: 
  Country: US (occurrence: US)
  Receive Date: 20121030
  Receipt Date: 20121030
  Transmission Date: 20130627
  Serious: Yes (Other)
  Sender: FDA-Public Use
  Company Number: US-ROCHE-1139641

PATIENT
  Sex: Female

DRUGS (3)
  1. PROTROPIN [Suspect]
     Indication: GROWTH HORMONE DEFICIENCY
     Route: 058
     Dates: start: 19920202
  2. PROTROPIN [Suspect]
     Route: 058
  3. PROTROPIN [Suspect]
     Route: 058

REACTIONS (9)
  - Wrist fracture [Unknown]
  - Fall [Unknown]
  - Weight increased [Unknown]
  - Growth retardation [Unknown]
  - Drug dose omission [Unknown]
  - Myopia [Unknown]
  - Goitre [Unknown]
  - Blood cholesterol increased [Unknown]
  - Weight decreased [Unknown]
